FAERS Safety Report 4572534-0 (Version None)
Quarter: 2005Q1

REPORT INFORMATION
  Report Type: 
  Country: None (occurrence: None)
  Receive Date: 20050207
  Receipt Date: 20050110
  Transmission Date: 20050727
  Serious: Yes (Hospitalization)
  Sender: FDA-Public Use
  Company Number: GB-MERCK-0501GBR00120

PATIENT
  Age: 3 Day
  Weight: 1 kg

DRUGS (2)
  1. ALDOMET [Suspect]
     Indication: POSITRON EMISSION TOMOGRAM
     Dates: start: 20041204, end: 20041209
  2. ERYTHROMYCIN [Concomitant]
     Indication: SEPSIS
     Dates: start: 20041203, end: 20041209

REACTIONS (2)
  - DRUG EXPOSURE DURING PREGNANCY [None]
  - GAMMA-GLUTAMYLTRANSFERASE INCREASED [None]
